FAERS Safety Report 15813884 (Version 1)
Quarter: 2019Q1

REPORT INFORMATION
  Report Type: Spontaneous
  Country: US (occurrence: US)
  Receive Date: 20190111
  Receipt Date: 20190111
  Transmission Date: 20190417
  Serious: No
  Sender: FDA-Public Use
  Company Number: None

PATIENT
  Sex: Female

DRUGS (2)
  1. CEFACLOR. [Suspect]
     Active Substance: CEFACLOR
  2. PENICILLIN [Suspect]
     Active Substance: PENICILLIN

REACTIONS (1)
  - Drug hypersensitivity [None]
